FAERS Safety Report 10645816 (Version 1)
Quarter: 2014Q4

REPORT INFORMATION
  Report Type: Spontaneous
  Country: DE (occurrence: DE)
  Receive Date: 20141211
  Receipt Date: 20141211
  Transmission Date: 20150529
  Serious: Yes (Congenital Anomaly, Other)
  Sender: FDA-Public Use
  Company Number: GXKR2014DE004591

PATIENT

DRUGS (5)
  1. FOLSAEURE [Concomitant]
     Active Substance: FOLIC ACID
     Indication: PROPHYLAXIS OF NEURAL TUBE DEFECT
     Route: 064
  2. SOTALOL. [Suspect]
     Active Substance: SOTALOL
     Indication: ARRHYTHMIA
     Dosage: 120 [MG/D (80-0-40) ]
     Route: 064
     Dates: start: 20140115, end: 20140910
  3. METHYLDOPA. [Concomitant]
     Active Substance: METHYLDOPA
     Indication: HYPERTENSION
     Route: 064
  4. ASPIRIN. [Concomitant]
     Active Substance: ASPIRIN
     Indication: CARDIOVASCULAR DISORDER
     Dosage: 100 [MG/D ]
     Route: 064
     Dates: start: 20140810, end: 20140905
  5. VALSARTAN. [Suspect]
     Active Substance: VALSARTAN
     Indication: HYPERTENSION
     Dosage: 80 [MG/D ]
     Route: 064
     Dates: start: 20140115, end: 20140910

REACTIONS (11)
  - High arched palate [Not Recovered/Not Resolved]
  - Foot deformity [Unknown]
  - Cryptorchism [Unknown]
  - Pulmonary hypertension [Recovered/Resolved]
  - Joint contracture [Unknown]
  - Patent ductus arteriosus [Unknown]
  - Renal failure [Unknown]
  - Hypertension [Unknown]
  - Premature baby [Recovering/Resolving]
  - Hypocalvaria [Unknown]
  - Atrial septal defect [Unknown]

NARRATIVE: CASE EVENT DATE: 20140919
